FAERS Safety Report 6550587-8 (Version None)
Quarter: 2010Q1

REPORT INFORMATION
  Report Type: 
  Country: None (occurrence: None)
  Receive Date: 20100122
  Receipt Date: 20100122
  Transmission Date: 20100710
  Serious: No
  Sender: FDA-Public Use
  Company Number: None

PATIENT
  Sex: Female
  Weight: 95.2554 kg

DRUGS (2)
  1. SYNTHROID [Suspect]
  2. LEVOTHYROXINE SODIUM [Suspect]

REACTIONS (4)
  - ABASIA [None]
  - CONDITION AGGRAVATED [None]
  - INSOMNIA [None]
  - MUSCLE SPASMS [None]
